FAERS Safety Report 19728907 (Version 2)
Quarter: 2021Q3

REPORT INFORMATION
  Report Type: Spontaneous
  Country: DE (occurrence: DE)
  Receive Date: 20210820
  Receipt Date: 20210917
  Transmission Date: 20211014
  Serious: Yes (Hospitalization, Other)
  Sender: FDA-Public Use
  Company Number: DE-PFIZER INC-202101009983

PATIENT
  Age: 73 Year
  Sex: Female
  Weight: 95 kg

DRUGS (16)
  1. COLECALCIFEROL [Concomitant]
     Active Substance: CHOLECALCIFEROL
     Dosage: UNK
  2. CANDESARTAN HCT [Concomitant]
     Active Substance: CANDESARTAN CILEXETIL\HYDROCHLOROTHIAZIDE
     Dosage: 1X/DAY
  3. INSULIN LISPRO [Concomitant]
     Active Substance: INSULIN LISPRO
     Dosage: 40 ? 0 ?  25 ? 0
  4. ATORVASTATIN [Concomitant]
     Active Substance: ATORVASTATIN
     Dosage: 40 MG, 1X/DAY
  5. EDOXABAN [Concomitant]
     Active Substance: EDOXABAN TOSYLATE
     Dosage: 30 MG, 1X/DAY
  6. PANTOPRAZOLE [Concomitant]
     Active Substance: PANTOPRAZOLE
     Dosage: 40 MG, 1X/DAY (1 ? 0 ? 0 ? 0)
  7. CELECOXIB. [Concomitant]
     Active Substance: CELECOXIB
     Dosage: 100 MG, 1X/DAY (1 ? 0 ? 0 ? 0)
  8. CARVEDILOL. [Concomitant]
     Active Substance: CARVEDILOL
     Dosage: 12.5 MG, 2X/DAY
  9. INSULIN LISPRO [Concomitant]
     Active Substance: INSULIN LISPRO
     Dosage: 50 IU, 56 ? 0 ? 36 ? 0
  10. TILIDIN [Concomitant]
     Active Substance: NALOXONE HYDROCHLORIDE\TILIDINE HYDROCHLORIDE
     Dosage: 50 MG, 1X/DAY
  11. MOXONIDIN [Concomitant]
     Active Substance: MOXONIDINE
     Dosage: 0.2 MG, 2X/DAY
  12. METFORMIN [Concomitant]
     Active Substance: METFORMIN HYDROCHLORIDE
     Dosage: 1000 MG, 2X/DAY
  13. CERTOLIZUMAB PEGOL [Suspect]
     Active Substance: CERTOLIZUMAB PEGOL
     Dosage: SCHEME
  14. TORASEMID [Concomitant]
     Active Substance: TORSEMIDE
     Dosage: 10 MG, 1X/DAY
  15. METHOTREXATE SODIUM. [Suspect]
     Active Substance: METHOTREXATE SODIUM
     Dosage: SCHEME
  16. APIXABAN [Concomitant]
     Active Substance: APIXABAN
     Dosage: 30 MG, 1X/DAY (1 ? 0 ? 0 ? 0)

REACTIONS (20)
  - Atrial fibrillation [Unknown]
  - Renal pain [Unknown]
  - Pyrexia [Unknown]
  - Dyspnoea [Unknown]
  - Flank pain [Unknown]
  - Cough [Unknown]
  - Vomiting [Unknown]
  - Blood glucose increased [Unknown]
  - Abdominal pain [Unknown]
  - Constipation [Unknown]
  - Hyperglycaemia [Unknown]
  - Condition aggravated [Unknown]
  - Dysuria [Unknown]
  - Electrocardiogram abnormal [Unknown]
  - Oedema peripheral [Unknown]
  - Tachypnoea [Unknown]
  - Localised infection [Unknown]
  - General physical health deterioration [Unknown]
  - Weight increased [Unknown]
  - Renal impairment [Unknown]
